FAERS Safety Report 25746251 (Version 2)
Quarter: 2025Q3

REPORT INFORMATION
  Report Type: Spontaneous
  Country: US (occurrence: US)
  Receive Date: 20250901
  Receipt Date: 20250914
  Transmission Date: 20251020
  Serious: Yes (Disabling)
  Sender: US WORLDMEDS
  Company Number: US-USWM-UWM202508-000142

PATIENT
  Sex: Male

DRUGS (1)
  1. EFLORNITHINE [Suspect]
     Active Substance: EFLORNITHINE
     Indication: Neoplasm malignant
     Dates: start: 20250725, end: 202509

REACTIONS (6)
  - Speech disorder [Unknown]
  - Asthenia [Unknown]
  - Behaviour disorder [Unknown]
  - Skin disorder [Unknown]
  - Lymphadenopathy [Unknown]
  - Alopecia [Unknown]
